FAERS Safety Report 11839113 (Version 2)
Quarter: 2016Q1

REPORT INFORMATION
  Report Type: Report from Study
  Country: CN (occurrence: CN)
  Receive Date: 20151216
  Receipt Date: 20160106
  Transmission Date: 20160525
  Serious: Yes (Hospitalization)
  Sender: FDA-Public Use
  Company Number: CN-ROCHE-1288584

PATIENT
  Age: 47 Year
  Sex: Female
  Weight: 60 kg

DRUGS (33)
  1. VINCRISTINE [Suspect]
     Active Substance: VINCRISTINE
     Indication: DIFFUSE LARGE B-CELL LYMPHOMA
     Dosage: LAST DOSE PRIOR TO SAE ON 23/MAY/2013 (LAST DOSE: 2 MG)
     Route: 040
     Dates: start: 20130502
  2. GLUTATHIONE [Concomitant]
     Active Substance: GLUTATHIONE
     Route: 065
     Dates: start: 20130603, end: 20130615
  3. ACETAMINOPHEN. [Concomitant]
     Active Substance: ACETAMINOPHEN
     Route: 065
     Dates: start: 20130522, end: 20130522
  4. TROPISETRON HYDROCHLORIDE [Concomitant]
     Active Substance: TROPISETRON HYDROCHLORIDE
     Indication: VOMITING
     Route: 065
     Dates: start: 20130523, end: 20130523
  5. AMINO ACIDS [Concomitant]
     Active Substance: AMINO ACIDS
     Route: 065
     Dates: start: 20130422, end: 20130615
  6. FUROSEMIDE. [Concomitant]
     Active Substance: FUROSEMIDE
     Indication: POLYURIA
     Route: 065
     Dates: start: 20130423, end: 20130516
  7. POTASSIUM CHLORIDE. [Concomitant]
     Active Substance: POTASSIUM CHLORIDE
     Route: 065
     Dates: start: 20130515, end: 20130515
  8. DIPHENHYDRAMINE HYDROCHLORIDE. [Concomitant]
     Active Substance: DIPHENHYDRAMINE HYDROCHLORIDE
     Indication: VOMITING
     Route: 065
     Dates: start: 20130508, end: 20130508
  9. BUCINNAZINE HYDROCHLORIDE [Concomitant]
     Route: 065
     Dates: start: 20130603, end: 20130605
  10. DOXORUBICIN [Suspect]
     Active Substance: DOXORUBICIN
     Indication: DIFFUSE LARGE B-CELL LYMPHOMA
     Dosage: LAST DOSE PRIOR TO SAE ON 23/MAY/2013 (LAST DOSE: 73 MG)
     Route: 042
     Dates: start: 20130502
  11. ACETAMINOPHEN. [Concomitant]
     Active Substance: ACETAMINOPHEN
     Indication: HYPERSENSITIVITY
     Route: 065
     Dates: start: 20130515, end: 20130515
  12. OBINUTUZUMAB [Suspect]
     Active Substance: OBINUTUZUMAB
     Indication: DIFFUSE LARGE B-CELL LYMPHOMA
     Dosage: LAST DOSE PRIOR TO SAE ON 22/MAY/2013 (LAST VOLUME TAKEN: 250 ML OF 4 MG/ML)
     Route: 042
     Dates: start: 20130501
  13. POTASSIUM CHLORIDE. [Concomitant]
     Active Substance: POTASSIUM CHLORIDE
     Indication: MINERAL SUPPLEMENTATION
     Route: 065
     Dates: start: 20130423, end: 20130516
  14. POTASSIUM CHLORIDE. [Concomitant]
     Active Substance: POTASSIUM CHLORIDE
     Route: 065
     Dates: start: 20130530, end: 20130615
  15. DIPHENHYDRAMINE HYDROCHLORIDE. [Concomitant]
     Active Substance: DIPHENHYDRAMINE HYDROCHLORIDE
     Route: 065
     Dates: start: 20130515, end: 20130515
  16. BUCINNAZINE HYDROCHLORIDE [Concomitant]
     Route: 065
     Dates: start: 20130511, end: 20130511
  17. CYCLOPHOSPHAMIDE. [Suspect]
     Active Substance: CYCLOPHOSPHAMIDE
     Indication: DIFFUSE LARGE B-CELL LYMPHOMA
     Dosage: LAST DOSE PRIOR TO SAE ON 23/MAY/2013 (LAST DOSE: 1095 MG)
     Route: 042
     Dates: start: 20130502
  18. FAT EMULSION NOS [Concomitant]
     Active Substance: EGG PHOSPHOLIPIDS\SAFFLOWER OIL\SOYBEAN OIL
     Route: 065
     Dates: start: 20130422, end: 20130610
  19. CEFOPERAZONE/SULBACTAM [Concomitant]
     Active Substance: CEFOPERAZONE\SULBACTAM
     Indication: INFECTION
     Route: 065
     Dates: start: 20130507, end: 20130521
  20. LEVOFLOXACIN LACTATE [Concomitant]
     Active Substance: LEVOFLOXACIN
     Indication: INFECTION
     Route: 065
     Dates: start: 20130424, end: 20130508
  21. LEVOFLOXACIN LACTATE [Concomitant]
     Active Substance: LEVOFLOXACIN
     Route: 065
     Dates: start: 20130527, end: 20130530
  22. DIPHENHYDRAMINE HYDROCHLORIDE. [Concomitant]
     Active Substance: DIPHENHYDRAMINE HYDROCHLORIDE
     Route: 065
     Dates: start: 20130522, end: 20130522
  23. BUCINNAZINE HYDROCHLORIDE [Concomitant]
     Route: 065
     Dates: start: 20130529, end: 20130529
  24. CEFTRIAXONE SODIUM. [Concomitant]
     Active Substance: CEFTRIAXONE SODIUM
     Indication: MINERAL SUPPLEMENTATION
     Route: 065
     Dates: start: 20130530, end: 20130615
  25. CEFTRIAXONE SODIUM. [Concomitant]
     Active Substance: CEFTRIAXONE SODIUM
     Indication: INFECTION
     Route: 065
     Dates: start: 20130607, end: 20130615
  26. ATROPINE SULFATE. [Concomitant]
     Active Substance: ATROPINE SULFATE
     Indication: MUSCLE SPASMS
     Route: 065
     Dates: start: 20130529, end: 20130529
  27. PREDNISONE. [Suspect]
     Active Substance: PREDNISONE
     Indication: DIFFUSE LARGE B-CELL LYMPHOMA
     Dosage: LAST DOSE PRIOR TO SAE ON 23/MAY/2013 (LAST DOSE: 100 MG)
     Route: 048
     Dates: start: 20130501
  28. GLUTATHIONE [Concomitant]
     Active Substance: GLUTATHIONE
     Indication: LIVER INJURY
     Route: 065
     Dates: start: 20130422, end: 20130530
  29. POTASSIUM CHLORIDE. [Concomitant]
     Active Substance: POTASSIUM CHLORIDE
     Route: 065
     Dates: start: 20130515, end: 20130521
  30. ACETAMINOPHEN. [Concomitant]
     Active Substance: ACETAMINOPHEN
     Indication: VOMITING
     Route: 065
     Dates: start: 20130508, end: 20130508
  31. BUCINNAZINE HYDROCHLORIDE [Concomitant]
     Indication: PAIN
     Route: 065
     Dates: start: 20130508, end: 20130510
  32. PROMETHAZINE [Concomitant]
     Active Substance: PROMETHAZINE\PROMETHAZINE HYDROCHLORIDE
     Indication: HYPERSENSITIVITY
     Route: 065
     Dates: start: 20130514, end: 20130514
  33. MORPHINE SULFATE. [Concomitant]
     Active Substance: MORPHINE SULFATE
     Indication: PAIN
     Route: 065
     Dates: start: 20130529, end: 20130529

REACTIONS (1)
  - Pyrexia [Recovered/Resolved]

NARRATIVE: CASE EVENT DATE: 20130606
